FAERS Safety Report 12677616 (Version 2)
Quarter: 2016Q3

REPORT INFORMATION
  Report Type: Report from Study
  Country: US (occurrence: US)
  Receive Date: 20160823
  Receipt Date: 20160830
  Transmission Date: 20161109
  Serious: Yes (Hospitalization)
  Sender: FDA-Public Use
  Company Number: US-ACTELION-A-US2015-113743

PATIENT
  Age: 75 Year
  Sex: Female

DRUGS (13)
  1. RIOCIGUAT [Concomitant]
     Active Substance: RIOCIGUAT
     Dosage: 1.5 MG, TID
     Route: 048
  2. ADCIRCA [Concomitant]
     Active Substance: TADALAFIL
  3. RIOCIGUAT [Concomitant]
     Active Substance: RIOCIGUAT
     Dosage: 0.5 MG, TID
     Route: 048
  4. OPSUMIT [Suspect]
     Active Substance: MACITENTAN
     Indication: PULMONARY HYPERTENSION
     Dosage: 10 MG, QD
     Route: 048
     Dates: start: 20141022
  5. CELLCEPT [Concomitant]
     Active Substance: MYCOPHENOLATE MOFETIL\MYCOPHENOLATE MOFETIL HYDROCHLORIDE
     Dosage: UNK
     Dates: start: 20120522
  6. FERRIC CARBOXYMALTOSE [Concomitant]
     Active Substance: FERRIC CARBOXYMALTOSE
     Dosage: UNK
     Dates: start: 20150613
  7. MONTELUKAST [Concomitant]
     Active Substance: MONTELUKAST SODIUM
     Dosage: UNK
     Dates: start: 20120522
  8. OLODATEROL [Concomitant]
     Active Substance: OLODATEROL
     Dosage: UNK
     Dates: start: 20150930
  9. OMEPRAZOLE. [Concomitant]
     Active Substance: OMEPRAZOLE
     Dosage: UNK
     Dates: start: 20150910
  10. TYVASO [Concomitant]
     Active Substance: TREPROSTINIL
     Dosage: UNK
     Dates: start: 20150224
  11. METOLAZONE. [Concomitant]
     Active Substance: METOLAZONE
     Dosage: UNK
     Dates: start: 20160503
  12. AMLODIPINE [Concomitant]
     Active Substance: AMLODIPINE BESYLATE
  13. TIOTROPIUM BROMIDE [Concomitant]
     Active Substance: TIOTROPIUM BROMIDE
     Dosage: UNK
     Dates: start: 20150930

REACTIONS (26)
  - Pulmonary oedema [Recovered/Resolved]
  - Headache [Unknown]
  - Pulmonary hypertension [Recovered/Resolved]
  - Anaemia [Recovering/Resolving]
  - Pericardial effusion [Unknown]
  - Fluid retention [Unknown]
  - Fatigue [Unknown]
  - Iron deficiency anaemia [Recovered/Resolved]
  - Abdominal discomfort [Unknown]
  - Vomiting [Unknown]
  - Face oedema [Unknown]
  - Throat irritation [Unknown]
  - Gastrooesophageal reflux disease [Unknown]
  - Weight increased [Unknown]
  - Oedema peripheral [Unknown]
  - Dyspnoea [Unknown]
  - Disease progression [Unknown]
  - Scleroderma [Unknown]
  - Asthenia [Unknown]
  - N-terminal prohormone brain natriuretic peptide increased [Recovering/Resolving]
  - Packed red blood cell transfusion [Recovering/Resolving]
  - Oedema [Unknown]
  - Cough [Unknown]
  - Dysphonia [Unknown]
  - Pain [Unknown]
  - Eructation [Unknown]

NARRATIVE: CASE EVENT DATE: 20150713
